FAERS Safety Report 20524891 (Version 2)
Quarter: 2022Q1

REPORT INFORMATION
  Report Type: Spontaneous
  Country: US (occurrence: US)
  Receive Date: 20220228
  Receipt Date: 20220317
  Transmission Date: 20220423
  Serious: Yes (Hospitalization)
  Sender: FDA-Public Use
  Company Number: US-JNJFOC-20220246170

PATIENT
  Age: 39 Year
  Sex: Male

DRUGS (2)
  1. SUDAFED NASAL DECONGESTANT MAXIMUM STRENGTH [Suspect]
     Active Substance: PSEUDOEPHEDRINE HYDROCHLORIDE
     Indication: Sinus congestion
     Dosage: MAXIMUM DOSE AS DIRECTED/2 TABS EACH TIME TWICE IN ONE DAY
     Route: 065
     Dates: start: 20211104
  2. SUDAFED NASAL DECONGESTANT MAXIMUM STRENGTH [Suspect]
     Active Substance: PSEUDOEPHEDRINE HYDROCHLORIDE
     Indication: Nasopharyngitis

REACTIONS (2)
  - Phaeochromocytoma [Recovering/Resolving]
  - Hypertensive crisis [Recovering/Resolving]

NARRATIVE: CASE EVENT DATE: 20211104
